FAERS Safety Report 13188110 (Version 1)
Quarter: 2017Q1

REPORT INFORMATION
  Report Type: Spontaneous
  Country: US (occurrence: US)
  Receive Date: 20170206
  Receipt Date: 20170206
  Transmission Date: 20170428
  Serious: Yes (Hospitalization, Other)
  Sender: FDA-Public Use
  Company Number: US-DRREDDYS-USA/USA/17/0086658

PATIENT
  Age: 75 Year
  Sex: Female

DRUGS (5)
  1. CLONAZEPAM. [Suspect]
     Active Substance: CLONAZEPAM
     Indication: TREMOR
     Route: 065
  2. PROPRANOLOL HYDROCHLORIDE. [Suspect]
     Active Substance: PROPRANOLOL HYDROCHLORIDE
     Indication: TREMOR
     Route: 065
  3. GABAPENTIN. [Suspect]
     Active Substance: GABAPENTIN
     Indication: TREMOR
     Route: 065
  4. PRIMIDONE TABLETS [Suspect]
     Active Substance: PRIMIDONE
     Indication: TREMOR
     Route: 065
  5. TOPIRAMATE. [Suspect]
     Active Substance: TOPIRAMATE
     Indication: TREMOR
     Route: 065

REACTIONS (10)
  - Tremor [Not Recovered/Not Resolved]
  - Memory impairment [Not Recovered/Not Resolved]
  - Infection [Unknown]
  - Cognitive disorder [Unknown]
  - Chest pain [Unknown]
  - Psychotic disorder [Unknown]
  - Somnolence [Unknown]
  - Balance disorder [Not Recovered/Not Resolved]
  - Cellulitis [Unknown]
  - Condition aggravated [Unknown]
